FAERS Safety Report 14274728 (Version 2)
Quarter: 2017Q4

REPORT INFORMATION
  Report Type: Spontaneous
  Country: US (occurrence: US)
  Receive Date: 20171212
  Receipt Date: 20171227
  Transmission Date: 20180321
  Serious: Yes (Hospitalization, Other)
  Sender: FDA-Public Use
  Company Number: US-JNJFOC-20171211838

PATIENT
  Age: 57 Year
  Sex: Male

DRUGS (1)
  1. INVOKANA [Suspect]
     Active Substance: CANAGLIFLOZIN
     Indication: TYPE 2 DIABETES MELLITUS
     Dosage: 100 MG, 300 MG 1 TABLET ONCE DAILY
     Route: 048

REACTIONS (3)
  - Diabetic foot [Unknown]
  - Blood blister [Unknown]
  - Toe amputation [Unknown]

NARRATIVE: CASE EVENT DATE: 2017
